FAERS Safety Report 12237394 (Version 1)
Quarter: 2016Q2

REPORT INFORMATION
  Report Type: Spontaneous
  Country: US (occurrence: None)
  Receive Date: 20160404
  Receipt Date: 20160404
  Transmission Date: 20160815
  Serious: No
  Sender: FDA-Public Use
  Company Number: None

PATIENT
  Sex: Male

DRUGS (2)
  1. PANTOPRAZOLE [Suspect]
     Active Substance: PANTOPRAZOLE SODIUM
  2. SYTROPIN CFSAN [Suspect]
     Active Substance: DIETARY SUPPLEMENT

REACTIONS (2)
  - Blood glucose abnormal [None]
  - Asthenia [None]
